FAERS Safety Report 9776830 (Version 3)
Quarter: 2014Q1

REPORT INFORMATION
  Report Type: Spontaneous
  Country: NO (occurrence: NO)
  Receive Date: 20131221
  Receipt Date: 20140212
  Transmission Date: 20141002
  Serious: Yes (Hospitalization, Other)
  Sender: FDA-Public Use
  Company Number: PHHY2013NO146577

PATIENT
  Age: 35 Year
  Sex: Female

DRUGS (2)
  1. GILENYA [Suspect]
     Indication: MULTIPLE SCLEROSIS
     Dosage: 1 DF, QD
     Route: 048
     Dates: start: 20130912, end: 20131212
  2. SAROTEX [Concomitant]
     Indication: MULTIPLE SCLEROSIS
     Dosage: 1 DF, QD

REACTIONS (21)
  - Necrotising fasciitis [Recovered/Resolved]
  - Pyrexia [Recovered/Resolved]
  - C-reactive protein increased [Unknown]
  - Pain in extremity [Recovered/Resolved]
  - Skin lesion [Unknown]
  - Soft tissue infection [Unknown]
  - Malaise [Unknown]
  - General physical condition abnormal [Unknown]
  - Rash [Unknown]
  - Pneumonia [Unknown]
  - Cough [Unknown]
  - Chills [Unknown]
  - Respiratory tract infection [Unknown]
  - Blood pressure increased [Unknown]
  - Heart rate increased [Unknown]
  - Neutrophil count increased [Unknown]
  - Lymphocyte count decreased [Unknown]
  - Eosinophil count decreased [Unknown]
  - Blood bilirubin decreased [Unknown]
  - Erythema [Unknown]
  - Swelling [Unknown]
